FAERS Safety Report 6348512-8 (Version None)
Quarter: 2009Q3

REPORT INFORMATION
  Report Type: 
  Country: None (occurrence: None)
  Receive Date: 20090911
  Receipt Date: 20090908
  Transmission Date: 20100115
  Serious: Yes (Death)
  Sender: FDA-Public Use
  Company Number: US-ABBOTT-09P-163-0595802-00

PATIENT
  Sex: Male

DRUGS (2)
  1. GENGRAF [Suspect]
     Indication: IMMUNOSUPPRESSION
     Dates: start: 20030701, end: 20090601
  2. GENGRAF [Suspect]
     Indication: HEART TRANSPLANT

REACTIONS (2)
  - COMPLICATIONS OF TRANSPLANTED HEART [None]
  - MYOCARDIAL ISCHAEMIA [None]
